FAERS Safety Report 18485893 (Version 1)
Quarter: 2020Q4

REPORT INFORMATION
  Report Type: Report from Study
  Country: None (occurrence: US)
  Receive Date: 20201110
  Receipt Date: 20201110
  Transmission Date: 20210114
  Serious: Yes (Hospitalization)
  Sender: FDA-Public Use
  Company Number: US-BIOVITRUM-2020US6073

PATIENT
  Sex: Male

DRUGS (10)
  1. PULMICORT TURBUHALER [Concomitant]
     Active Substance: BUDESONIDE
  2. GLYCERIN INFANT [Concomitant]
  3. OMEPRAZOLE. [Concomitant]
     Active Substance: OMEPRAZOLE
  4. SYNAGIS [Suspect]
     Active Substance: PALIVIZUMAB
     Indication: ANTIVIRAL PROPHYLAXIS
     Route: 030
  5. DIURIL [Concomitant]
     Active Substance: CHLOROTHIAZIDE
  6. LACTULOSE. [Concomitant]
     Active Substance: LACTULOSE
  7. DUONEB [Concomitant]
     Active Substance: ALBUTEROL SULFATE\IPRATROPIUM BROMIDE
  8. FLOVENT HFA [Concomitant]
     Active Substance: FLUTICASONE PROPIONATE
  9. TYLENOL [Concomitant]
     Active Substance: ACETAMINOPHEN
  10. MYCOSTATIN [Concomitant]
     Active Substance: NYSTATIN

REACTIONS (1)
  - Pyrexia [Unknown]
